FAERS Safety Report 15562867 (Version 1)
Quarter: 2018Q4

REPORT INFORMATION
  Report Type: Spontaneous
  Country: FR (occurrence: FR)
  Receive Date: 20181029
  Receipt Date: 20181029
  Transmission Date: 20190205
  Serious: Yes (Other)
  Sender: FDA-Public Use
  Company Number: FR-ALSI-201800577

PATIENT
  Age: 50 Year
  Sex: Female

DRUGS (1)
  1. OXYGEN. [Suspect]
     Active Substance: OXYGEN
     Indication: PULMONARY FIBROSIS
     Route: 055
     Dates: start: 20140617

REACTIONS (3)
  - Burns second degree [Recovering/Resolving]
  - Intentional product misuse [Recovering/Resolving]
  - Burns third degree [Recovering/Resolving]
